FAERS Safety Report 6758359-6 (Version None)
Quarter: 2010Q2

REPORT INFORMATION
  Report Type: 
  Country: None (occurrence: None)
  Receive Date: 20100607
  Receipt Date: 20100531
  Transmission Date: 20101027
  Serious: Yes (Hospitalization)
  Sender: FDA-Public Use
  Company Number: FR-SANOFI-AVENTIS-2010SA031527

PATIENT
  Age: 65 Year
  Sex: Male

DRUGS (11)
  1. OXALIPLATIN [Suspect]
     Indication: MANTLE CELL LYMPHOMA
     Route: 041
     Dates: start: 20100407, end: 20100407
  2. RITUXIMAB [Suspect]
     Route: 041
     Dates: start: 20100319, end: 20100407
  3. CISPLATIN [Suspect]
     Indication: MANTLE CELL LYMPHOMA
     Route: 042
     Dates: start: 20100316, end: 20100316
  4. CYTARABINE [Suspect]
     Indication: MANTLE CELL LYMPHOMA
     Route: 065
     Dates: start: 20100316, end: 20100317
  5. DEXAMETHASONE [Suspect]
     Indication: MANTLE CELL LYMPHOMA
     Route: 065
     Dates: start: 20100316, end: 20100319
  6. VALACYCLOVIR [Concomitant]
     Dates: start: 20100308
  7. BACTRIM DS [Concomitant]
     Dates: start: 20100308
  8. SPECIAFOLDINE [Concomitant]
     Dates: start: 20100308
  9. LACTULOSE [Concomitant]
     Dates: start: 20100310
  10. LYSANXIA [Concomitant]
     Dates: start: 20000101
  11. OMEPRAZOLE [Concomitant]
     Dates: start: 20100308

REACTIONS (6)
  - ATRIAL FIBRILLATION [None]
  - HYPOTENSION [None]
  - PYREXIA [None]
  - RENAL FAILURE ACUTE [None]
  - SEPTIC SHOCK [None]
  - TUMOUR LYSIS SYNDROME [None]
